FAERS Safety Report 7183482-4 (Version None)
Quarter: 2010Q4

REPORT INFORMATION
  Report Type: 
  Country: None (occurrence: None)
  Receive Date: 20101222
  Receipt Date: 20101208
  Transmission Date: 20110411
  Serious: Yes (Other)
  Sender: FDA-Public Use
  Company Number: PHHY2010BR83825

PATIENT
  Sex: Female

DRUGS (2)
  1. TEGRETOL [Suspect]
     Indication: CONVULSION
     Dosage: 400 MG, UNK
     Route: 048
     Dates: start: 20080101, end: 20100101
  2. TOPAMAX [Concomitant]
     Dosage: UNK
     Dates: start: 20101101

REACTIONS (4)
  - BRAIN NEOPLASM [None]
  - CONVULSION [None]
  - DRUG INEFFECTIVE [None]
  - TUMOUR EXCISION [None]
